FAERS Safety Report 9781330 (Version 1)
Quarter: 2013Q4

REPORT INFORMATION
  Report Type: Spontaneous
  Country: US (occurrence: None)
  Receive Date: 20131223
  Receipt Date: 20131223
  Transmission Date: 20140711
  Serious: Yes (Life-Threatening)
  Sender: FDA-Public Use
  Company Number: None

PATIENT
  Sex: Female

DRUGS (3)
  1. FORTEO 600MCG/2.4ML PEN ELI LILLY [Suspect]
     Dosage: 20MCG, QD, SUBQ
     Dates: start: 20121112
  2. FORTEO 600MCG/2.4ML PEN ELI LILLY [Suspect]
     Dosage: 20MCG, QD, SUBQ
     Dates: start: 20121112
  3. PRAVASTATIN [Concomitant]

REACTIONS (1)
  - Cerebrovascular accident [None]
